FAERS Safety Report 10111337 (Version 1)
Quarter: 2014Q2

REPORT INFORMATION
  Report Type: Spontaneous
  Country: US (occurrence: US)
  Receive Date: 20140425
  Receipt Date: 20140425
  Transmission Date: 20141212
  Serious: Yes (Other)
  Sender: FDA-Public Use
  Company Number: 2014SP001221

PATIENT
  Sex: Female

DRUGS (4)
  1. XOPENEX INHALATION SOLUTION [Suspect]
     Indication: BRONCHITIS
     Route: 055
     Dates: start: 20140222, end: 20140222
  2. ALBUTEROL [Concomitant]
  3. METFORMIN [Concomitant]
     Indication: POLYCYSTIC OVARIES
     Route: 048
  4. ARMOUR THYROID [Concomitant]
     Indication: HYPOTHYROIDISM
     Route: 048

REACTIONS (7)
  - Respiratory rate increased [Recovered/Resolved]
  - Breath sounds abnormal [Recovered/Resolved]
  - Dyspnoea [Recovered/Resolved]
  - Discomfort [Recovered/Resolved]
  - Hypoaesthesia [Recovered/Resolved]
  - Dizziness [Recovered/Resolved]
  - Paraesthesia [Recovered/Resolved]
